APPROVED DRUG PRODUCT: NELARABINE
Active Ingredient: NELARABINE
Strength: 250MG/50ML (5MG/ML)
Dosage Form/Route: INJECTABLE;INTRAVENOUS
Application: A215037 | Product #001 | TE Code: AP
Applicant: ZYDUS PHARMACEUTICALS USA INC
Approved: Nov 17, 2021 | RLD: No | RS: No | Type: RX